FAERS Safety Report 15556589 (Version 2)
Quarter: 2019Q1

REPORT INFORMATION
  Report Type: Report from Study
  Country: CL (occurrence: CL)
  Receive Date: 20181026
  Receipt Date: 20190103
  Transmission Date: 20190417
  Serious: Yes (Other)
  Sender: FDA-Public Use
  Company Number: CL-BRISTOL-MYERS SQUIBB COMPANY-BMS-2018-090968

PATIENT
  Age: 82 Year
  Sex: Female

DRUGS (1)
  1. ABATACEPT [Suspect]
     Active Substance: ABATACEPT
     Indication: RHEUMATOID ARTHRITIS
     Dosage: 125 MG, QWK
     Route: 058
     Dates: start: 20171227, end: 201809

REACTIONS (9)
  - Nasopharyngitis [Recovering/Resolving]
  - Nasal dryness [Recovering/Resolving]
  - Rheumatic disorder [Recovering/Resolving]
  - Respiratory failure [Recovering/Resolving]
  - Cough [Recovering/Resolving]
  - Memory impairment [Recovering/Resolving]
  - Pain [Recovering/Resolving]
  - Influenza [Unknown]
  - Platelet count decreased [Recovering/Resolving]

NARRATIVE: CASE EVENT DATE: 201809
